FAERS Safety Report 7532270-5 (Version None)
Quarter: 2011Q2

REPORT INFORMATION
  Report Type: 
  Country: None (occurrence: None)
  Receive Date: 20110608
  Receipt Date: 20110124
  Transmission Date: 20111010
  Serious: No
  Sender: FDA-Public Use
  Company Number: US-TEVA-262351USA

PATIENT
  Sex: Female

DRUGS (3)
  1. ENJUVIA [Suspect]
     Dosage: 45 MBQ;
     Dates: start: 20100301, end: 20101001
  2. BENAZEPRIL HYDROCHLORIDE [Concomitant]
     Indication: BLOOD PRESSURE
  3. ERGOCALCIFEROL [Concomitant]

REACTIONS (2)
  - ALOPECIA [None]
  - HAIR DISORDER [None]
